FAERS Safety Report 19835698 (Version 1)
Quarter: 2021Q3

REPORT INFORMATION
  Report Type: Report from Study
  Country: None (occurrence: GR)
  Receive Date: 20210916
  Receipt Date: 20210916
  Transmission Date: 20211014
  Serious: Yes (Hospitalization)
  Sender: FDA-Public Use
  Company Number: GR-ABBVIE-21K-066-4077525-00

PATIENT
  Age: 70 Year
  Sex: Male
  Weight: 73 kg

DRUGS (8)
  1. SAGILIA [Concomitant]
     Indication: PARKINSON^S DISEASE
     Route: 048
  2. NEUPRO [Concomitant]
     Active Substance: ROTIGOTINE
     Indication: PARKINSON^S DISEASE
     Dosage: ONCE DAILY (AT NIGHT)
     Route: 062
  3. LIPITOR [Concomitant]
     Active Substance: ATORVASTATIN CALCIUM
     Indication: BLOOD CHOLESTEROL ABNORMAL
     Route: 048
  4. MEDROL [Concomitant]
     Active Substance: METHYLPREDNISOLONE
     Indication: ARTHRALGIA
     Dosage: 0.25 OF UNKNOWN UNIT DOSE, ONCE DAILY
     Route: 048
  5. DUODOPA [Suspect]
     Active Substance: CARBIDOPA\LEVODOPA
     Indication: PARKINSON^S DISEASE
     Dosage: MORNING DOSE: 10.0 ML; CONTINUOUS RATE: 4.1 ML/H; EXTRA DOSE: 1.5 ML
     Route: 050
     Dates: start: 20210907
  6. DUODOPA [Suspect]
     Active Substance: CARBIDOPA\LEVODOPA
  7. REQUIP [Concomitant]
     Active Substance: ROPINIROLE HYDROCHLORIDE
     Indication: PARKINSON^S DISEASE
     Route: 048
  8. PLAVIX [Concomitant]
     Active Substance: CLOPIDOGREL BISULFATE
     Indication: PRODUCT USED FOR UNKNOWN INDICATION
     Dosage: ONCE DAILY, EVERY OTHER DAY
     Route: 048

REACTIONS (2)
  - Abdominal pain upper [Unknown]
  - Abdominal pain [Recovered/Resolved]

NARRATIVE: CASE EVENT DATE: 202109
